FAERS Safety Report 23772741 (Version 1)
Quarter: 2024Q2

REPORT INFORMATION
  Report Type: Spontaneous
  Country: US (occurrence: None)
  Receive Date: 20240422
  Receipt Date: 20240422
  Transmission Date: 20240716
  Serious: Yes (Hospitalization)
  Sender: FDA-Public Use
  Company Number: None

PATIENT
  Age: 62 Year
  Sex: Female

DRUGS (1)
  1. ENBREL [Suspect]
     Active Substance: BENZYL ALCOHOL\ETANERCEPT
     Dosage: FREQUENCY : WEEKLY;?

REACTIONS (6)
  - Pneumonia [None]
  - Cardiac failure congestive [None]
  - Nausea [None]
  - Dizziness [None]
  - Headache [None]
  - Fatigue [None]
